FAERS Safety Report 6818730-0 (Version None)
Quarter: 2010Q2

REPORT INFORMATION
  Report Type: 
  Country: None (occurrence: None)
  Receive Date: 20100630
  Receipt Date: 20100615
  Transmission Date: 20101027
  Serious: Yes (Hospitalization)
  Sender: FDA-Public Use
  Company Number: 2010AL003589

PATIENT
  Age: 51 Year
  Sex: Female

DRUGS (5)
  1. PACLITAXEL [Suspect]
     Indication: OVARIAN CANCER
     Dosage: IV
     Route: 042
  2. DEXAMETHASONE (PREV.) [Concomitant]
  3. RANITIDINE (PREV.) [Concomitant]
  4. GRANISETRON (PREV.) [Concomitant]
  5. PHENIRAMINE (PREV.) [Concomitant]

REACTIONS (4)
  - ACUTE CORONARY SYNDROME [None]
  - BLOOD PRESSURE DIASTOLIC DECREASED [None]
  - CORONARY ARTERY STENOSIS [None]
  - EMOTIONAL DISTRESS [None]
